FAERS Safety Report 8814089 (Version 2)
Quarter: 2012Q4

REPORT INFORMATION
  Report Type: 
  Country: US (occurrence: US)
  Receive Date: 20120928
  Receipt Date: 20121017
  Transmission Date: 20130627
  Serious: No
  Sender: FDA-Public Use
  Company Number: US-PFIZER INC-2012237671

PATIENT
  Age: 67 Year
  Sex: Female

DRUGS (5)
  1. TOVIAZ [Suspect]
     Indication: URGE INCONTINENCE
     Dosage: 4 mg, 1x/day
     Route: 048
     Dates: start: 20120611, end: 20120615
  2. PERCOCET [Concomitant]
     Dosage: UNK
  3. AMBIEN [Concomitant]
     Dosage: UNK
  4. ASPIRIN [Concomitant]
     Dosage: UNK
  5. KADIAN [Concomitant]
     Dosage: UNK

REACTIONS (2)
  - Rash [Recovered/Resolved]
  - Pruritus [Unknown]
